FAERS Safety Report 6700942-8 (Version None)
Quarter: 2010Q2

REPORT INFORMATION
  Report Type: 
  Country: None (occurrence: None)
  Receive Date: 20100428
  Receipt Date: 20100421
  Transmission Date: 20101027
  Serious: Yes (Other)
  Sender: FDA-Public Use
  Company Number: CH-ROCHE-698914

PATIENT
  Age: 3 Year
  Sex: Female

DRUGS (3)
  1. TAMIFLU [Suspect]
     Indication: INFLUENZA
     Route: 048
     Dates: start: 20091119, end: 20091123
  2. TOPAMAX [Concomitant]
     Indication: EPILEPSY
     Route: 048
  3. KEPPRA [Concomitant]
     Indication: EPILEPSY
     Route: 048

REACTIONS (3)
  - AGITATION [None]
  - CONVULSION [None]
  - SLEEP DISORDER [None]
